FAERS Safety Report 6243740-4 (Version None)
Quarter: 2009Q2

REPORT INFORMATION
  Report Type: 
  Country: None (occurrence: None)
  Receive Date: 20090624
  Receipt Date: 20090403
  Transmission Date: 20091009
  Serious: Yes (Other)
  Sender: FDA-Public Use
  Company Number: A0777117A

PATIENT

DRUGS (4)
  1. FORTAZ [Suspect]
     Indication: DRUG USE FOR UNKNOWN INDICATION
  2. VANCOMYCIN [Concomitant]
  3. AZTREONAM [Concomitant]
  4. UNASYN [Concomitant]

REACTIONS (1)
  - NEUTROPENIA [None]
